FAERS Safety Report 8793960 (Version 2)
Quarter: 2015Q2

REPORT INFORMATION
  Report Type: Report from Study
  Country: US (occurrence: US)
  Receive Date: 20120917
  Receipt Date: 20150624
  Transmission Date: 20150821
  Serious: Yes (Death)
  Sender: FDA-Public Use
  Company Number: US-ROCHE-1128618

PATIENT
  Sex: Female

DRUGS (8)
  1. AVASTIN [Suspect]
     Active Substance: BEVACIZUMAB
     Indication: BREAST CANCER FEMALE
     Route: 042
     Dates: start: 20061206
  2. XELODA [Concomitant]
     Active Substance: CAPECITABINE
     Route: 065
  3. ALEVE [Concomitant]
     Active Substance: NAPROXEN SODIUM
  4. ATIVAN [Concomitant]
     Active Substance: LORAZEPAM
     Route: 042
  5. NEXIUM [Concomitant]
     Active Substance: ESOMEPRAZOLE MAGNESIUM
     Route: 048
  6. EFFEXOR [Concomitant]
     Active Substance: VENLAFAXINE HYDROCHLORIDE
     Route: 048
  7. COUMADIN [Concomitant]
     Active Substance: WARFARIN SODIUM
     Route: 048
  8. ZOFRAN [Concomitant]
     Active Substance: ONDANSETRON HYDROCHLORIDE
     Route: 042
     Dates: start: 20061219

REACTIONS (6)
  - Off label use [Unknown]
  - Death [Fatal]
  - Weight decreased [Unknown]
  - Hepatic pain [Unknown]
  - Vomiting [Unknown]
  - Nausea [Unknown]
